FAERS Safety Report 6178682-6 (Version None)
Quarter: 2009Q2

REPORT INFORMATION
  Report Type: 
  Country: None (occurrence: None)
  Receive Date: 20090430
  Receipt Date: 20090423
  Transmission Date: 20091009
  Serious: Yes (Death, Hospitalization, Other)
  Sender: FDA-Public Use
  Company Number: 2009US000711

PATIENT
  Age: 75 Year
  Sex: Male
  Weight: 95.1 kg

DRUGS (14)
  1. MYCAMINE [Suspect]
     Indication: DRUG USE FOR UNKNOWN INDICATION
     Dates: start: 20061123
  2. MEGACE [Concomitant]
  3. PROCRIT [Concomitant]
  4. CEFEPIME [Concomitant]
  5. NOREPINEPHRINE (NOREPINEPHRINE HYDROCHLORIDE) [Concomitant]
  6. PROTONIX [Concomitant]
  7. DIPRIVAN [Concomitant]
  8. PIPERACILLIN/TAZO. (PIPERACILLIN SODIUM, TAZOBACTAM SODIUM) [Concomitant]
  9. ALBUTEROL [Concomitant]
  10. SIMVASTATIN [Concomitant]
  11. WARFARIN SODIUM [Concomitant]
  12. DIGOXIN [Concomitant]
  13. FUROSEMIDE [Concomitant]
  14. POTASSIUM (POTASSIUM) [Concomitant]

REACTIONS (11)
  - BLOOD PRESSURE SYSTOLIC DECREASED [None]
  - CARDIOVASCULAR DISORDER [None]
  - DYSPHAGIA [None]
  - GALLBLADDER DISORDER [None]
  - HAEMATOCRIT DECREASED [None]
  - HAEMOGLOBIN DECREASED [None]
  - MYELODYSPLASTIC SYNDROME [None]
  - SEPSIS [None]
  - TACHYCARDIA [None]
  - TRANSAMINASES INCREASED [None]
  - WEIGHT DECREASED [None]
